FAERS Safety Report 12184853 (Version 1)
Quarter: 2016Q1

REPORT INFORMATION
  Report Type: Spontaneous
  Country: IN (occurrence: IN)
  Receive Date: 20160316
  Receipt Date: 20160316
  Transmission Date: 20160526
  Serious: Yes (Other)
  Sender: FDA-Public Use
  Company Number: IN-WATSON-2016-05457

PATIENT
  Age: 32 Year
  Sex: Male

DRUGS (3)
  1. CLOZAPINE (UNKNOWN) [Suspect]
     Active Substance: CLOZAPINE
     Dosage: 25 MG, DAILY
     Route: 048
  2. CLOZAPINE (UNKNOWN) [Suspect]
     Active Substance: CLOZAPINE
     Indication: SCHIZOPHRENIA
     Dosage: 250 MG, DAILY
     Route: 048
  3. CLOZAPINE (UNKNOWN) [Suspect]
     Active Substance: CLOZAPINE
     Dosage: 100 MG, DAILY
     Route: 048

REACTIONS (1)
  - Delirium [Recovered/Resolved]
